FAERS Safety Report 8741856 (Version 2)
Quarter: 2012Q4

REPORT INFORMATION
  Report Type: 
  Country: US (occurrence: US)
  Receive Date: 20120824
  Receipt Date: 20120830
  Transmission Date: 20130627
  Serious: Yes (Other)
  Sender: FDA-Public Use
  Company Number: US-PFIZER INC-2012203803

PATIENT
  Age: 58 Year
  Sex: Female

DRUGS (1)
  1. ALTACE [Suspect]
     Dosage: UNK

REACTIONS (4)
  - Anaphylactic shock [Unknown]
  - Swollen tongue [Unknown]
  - Dyspnoea [Unknown]
  - Dysgeusia [Unknown]
